FAERS Safety Report 6097258-2 (Version None)
Quarter: 2009Q1

REPORT INFORMATION
  Report Type: 
  Country: None (occurrence: None)
  Receive Date: 20090227
  Receipt Date: 20090219
  Transmission Date: 20090719
  Serious: Yes (Hospitalization)
  Sender: FDA-Public Use
  Company Number: US-ABBOTT-09P-163-0558306-00

PATIENT
  Sex: Male
  Weight: 87.168 kg

DRUGS (4)
  1. DEPAKOTE ER [Suspect]
     Indication: CONVULSION
     Dosage: 3 X 500MG TABS = 1500MG AT HS
     Dates: start: 20040101
  2. ENVAGA/RISPERDAL [Concomitant]
     Indication: BIPOLAR DISORDER
  3. VALIUM [Concomitant]
     Indication: DRUG USE FOR UNKNOWN INDICATION
  4. REMERON [Concomitant]
     Indication: INSOMNIA

REACTIONS (2)
  - HYPOTHERMIA [None]
  - SYNCOPE [None]
